FAERS Safety Report 6735537-3 (Version None)
Quarter: 2010Q2

REPORT INFORMATION
  Report Type: 
  Country: None (occurrence: None)
  Receive Date: 20100521
  Receipt Date: 20100511
  Transmission Date: 20101027
  Serious: Yes (Hospitalization)
  Sender: FDA-Public Use
  Company Number: JP-ELI_LILLY_AND_COMPANY-JP201005002675

PATIENT
  Age: 72 Year
  Sex: Male
  Weight: 63.1 kg

DRUGS (21)
  1. PEMETREXED [Suspect]
     Indication: LUNG ADENOCARCINOMA STAGE IV
     Dosage: 850 MG, OTHER
     Route: 042
     Dates: start: 20090904, end: 20100104
  2. CARBOPLATIN [Concomitant]
     Indication: LUNG ADENOCARCINOMA STAGE IV
     Dosage: 680 MG, OTHER
     Route: 042
     Dates: start: 20090904, end: 20100104
  3. PANVITAN [Concomitant]
     Dosage: 1 G, DAILY (1/D)
     Dates: start: 20090827, end: 20100125
  4. VITAMIN B-12 [Concomitant]
     Dosage: 1 MG, UNK
     Dates: start: 20090828, end: 20091224
  5. ADONA [Concomitant]
     Indication: HAEMOPTYSIS
     Dosage: UNK, UNKNOWN
     Route: 065
     Dates: start: 20090902
  6. TRANSAMIN [Concomitant]
     Indication: HAEMOPTYSIS
     Dosage: UNK, UNKNOWN
     Route: 065
     Dates: start: 20090902
  7. TRANSAMIN [Concomitant]
     Dosage: UNK, UNKNOWN
     Route: 065
     Dates: start: 20090905, end: 20090910
  8. ACETAMINOPHEN [Concomitant]
     Indication: PNEUMONIA
  9. LIPITOR [Concomitant]
     Indication: HYPERLIPIDAEMIA
     Dosage: UNK, UNKNOWN
     Route: 065
     Dates: end: 20091024
  10. AMLODIN [Concomitant]
     Indication: HYPERTENSION
     Dosage: UNK, UNKNOWN
     Route: 065
     Dates: end: 20090907
  11. BROCIN-CODEINE [Concomitant]
     Indication: COUGH
     Dosage: UNK, UNKNOWN
     Route: 048
  12. LOXONIN [Concomitant]
     Indication: METASTASES TO CENTRAL NERVOUS SYSTEM
     Dosage: UNK, UNKNOWN
     Route: 065
  13. SILODOSIN [Concomitant]
     Indication: BENIGN PROSTATIC HYPERPLASIA
     Dosage: UNK, UNKNOWN
     Route: 065
  14. VESICARE [Concomitant]
     Indication: BENIGN PROSTATIC HYPERPLASIA
     Dosage: UNK, UNKNOWN
     Route: 065
  15. MAXIPIME [Concomitant]
     Indication: PNEUMONIA
     Dosage: UNK, UNKNOWN
     Route: 065
     Dates: end: 20090908
  16. AUZEI [Concomitant]
     Indication: HAEMOPTYSIS
     Dosage: UNK, UNKNOWN
     Route: 065
     Dates: start: 20090905, end: 20090910
  17. PURSENNID [Concomitant]
     Indication: CONSTIPATION
     Dosage: UNK, UNKNOWN
     Route: 065
     Dates: start: 20090909
  18. TELEMINSOFT [Concomitant]
     Indication: CONSTIPATION
     Dosage: UNK, UNKNOWN
     Route: 022
     Dates: start: 20090909
  19. ALLEGRA [Concomitant]
     Indication: RASH
     Dosage: UNK, UNKNOWN
     Route: 065
     Dates: start: 20090912, end: 20090915
  20. GRANISETRON [Concomitant]
     Dosage: UNK, UNKNOWN
     Route: 042
     Dates: start: 20090904, end: 20100104
  21. DEXART [Concomitant]
     Dosage: UNK, UNKNOWN
     Route: 042
     Dates: start: 20090904, end: 20100104

REACTIONS (1)
  - PLEURISY [None]
